FAERS Safety Report 23492301 (Version 6)
Quarter: 2025Q4

REPORT INFORMATION
  Report Type: Report from Study
  Country: US (occurrence: None)
  Receive Date: 20240207
  Receipt Date: 20251224
  Transmission Date: 20260118
  Serious: Yes (Hospitalization, Other)
  Sender: UCB
  Company Number: US-UCBSA-2023050018

PATIENT
  Age: 14 Year
  Weight: 26.8 kg

DRUGS (33)
  1. FENFLURAMINE [Suspect]
     Active Substance: FENFLURAMINE
     Indication: Lennox-Gastaut syndrome
     Dosage: 4 MILLILITER, 2X/DAY (BID)
  2. FENFLURAMINE [Suspect]
     Active Substance: FENFLURAMINE
     Dosage: 8.00 TWICE A DAY
  3. FENFLURAMINE [Suspect]
     Active Substance: FENFLURAMINE
     Dosage: 8.8 MILLIGRAM, 2X/DAY (BID)
  4. FENFLURAMINE [Suspect]
     Active Substance: FENFLURAMINE
     Dosage: 0.66 MILLIGRAM/KILOGRAM/DAY (17.6 MILLIGRAM PER DAY)
  5. FENFLURAMINE [Suspect]
     Active Substance: FENFLURAMINE
     Dosage: 4 MILLILITER, 2X/DAY (BID)
  6. FENFLURAMINE [Suspect]
     Active Substance: FENFLURAMINE
     Dosage: 17.6 MILLIGRAM PER DAY
  7. FENFLURAMINE [Suspect]
     Active Substance: FENFLURAMINE
     Dosage: 0.60 MG/KG/DAY TO A TOTAL OF 17.6
  8. FENFLURAMINE [Suspect]
     Active Substance: FENFLURAMINE
     Dosage: 4 MILLILITER, 2X/DAY (BID)
  9. FENFLURAMINE [Suspect]
     Active Substance: FENFLURAMINE
     Dosage: 8.8 MILLIGRAM, 2X/DAY (BID)
  10. DIAMOX SEQUELS [Concomitant]
     Active Substance: ACETAZOLAMIDE
     Indication: Product used for unknown indication
     Dosage: TAKE 2 TABLETS (250 MG TOTAL) BY MOUTH IN THE MORNING AND .2 TABLETS (250 MG TOTAL) BEFORE BEDTIME.,
  11. ADAPALENE AND BENZOYL PEROXIDE [Concomitant]
     Active Substance: ADAPALENE\BENZOYL PEROXIDE
     Indication: Product used for unknown indication
     Dosage: 0, 1 ?2.5 % GEL, APPLY 1 APPLICATION TOPICALLY EVERY NIGHT.
  12. ALBUTEROL [Concomitant]
     Active Substance: ALBUTEROL
     Indication: Product used for unknown indication
     Dosage: 0.083% NEBULLZER SOLUTION, TAKE 3 ML (2.5 MG TOTAL) BY NEBULIZATION IN THE MORNING AND 3 ML (2.5 MG TOTAL) BEFORE BEDTIME
  13. LIORESAL [Concomitant]
     Active Substance: BACLOFEN
     Indication: Product used for unknown indication
     Dosage: 20 MG TABLET, 1 TABLET (20 MG TOTAL) BY PER G TUBE ROUTE IN THE MORNING AND 1 TABLET (20 MG TOTAL) AT NOON AND 1 TABLET (20 MG TOTAL) BEFORE BEDTIME
  14. EPIDIOLEX [Concomitant]
     Active Substance: CANNABIDIOL
     Indication: Product used for unknown indication
     Dosage: 220 MILLIGRAM, 2X/DAY (BID)
  15. DERMOTIC [Concomitant]
     Active Substance: FLUOCINOLONE ACETONIDE
     Indication: Product used for unknown indication
     Dosage: 0.01 % OIL
  16. NIZORAL [Concomitant]
     Active Substance: KETOCONAZOLE
     Indication: Product used for unknown indication
     Dosage: 2 % SHAMPOO, USE 2 TIMES A WEEK
  17. CLARITIN-D NOS [Concomitant]
     Active Substance: LORATADINE\PSEUDOEPHEDRINE SULFATE
     Indication: Product used for unknown indication
     Dosage: 1 O MG TABLET, 1 TABLET (10 MG TOTAL) BY PER G TUBE ROUTE 1 (ONE) TIME EECH DAY.
  18. PHENOBARBITAL [Concomitant]
     Active Substance: PHENOBARBITAL
     Indication: Product used for unknown indication
     Dosage: 15 MG TABLET, TAKE 1 TABLET (15 MG TOTAL) BY MOUTH IN THE MORNING AND 1 TABLET (15 MG TOTAL) AT NOON AND 1 TABLET (15 MG TOTAL) BEFORE BEDTIME.
  19. PHENOBARBITAL [Concomitant]
     Active Substance: PHENOBARBITAL
     Dosage: 60 MG TABLET, TOME 1 TABLETA POR VIA ORAL DOS VEGES AL DIA,
  20. GLYCOLAX [Concomitant]
     Active Substance: POLYETHYLENE GLYCOL 3350
     Indication: Product used for unknown indication
     Dosage: 17 GM/SCOOP POW?ER1 17 G BY PER G TUBE ROUTE 1 (ONE) TIME EACH DAY,
  21. POTASSIUM CHLORIDE [Concomitant]
     Active Substance: POTASSIUM CHLORIDE
     Indication: Product used for unknown indication
     Dosage: 10 % SOLUTION, 7.5 ML BY PER G TUBE ROUTE 1 (ONE) TIME EACH DAY
  22. SODIUM CHLORIDE [Concomitant]
     Active Substance: SODIUM CHLORIDE
     Indication: Product used for unknown indication
     Dosage: 0,9 % NEBULIZER SOLUTION, TAKE 3 ML BY NEBULIZATION IF NEEDED
  23. TOBI [Concomitant]
     Active Substance: TOBRAMYCIN
     Indication: Product used for unknown indication
     Dosage: 300 MG/5ML NEBULIZER SOLUTION
  24. ZONEGRAN [Concomitant]
     Active Substance: ZONISAMIDE
     Indication: Product used for unknown indication
     Dosage: 100 MILLIGRAM, ONCE DAILY (QD) TOME 1 CAP SULA POR VIA ORAL TO DOS LOS DIAS,
  25. NEXIUM I.V. [Concomitant]
     Active Substance: ESOMEPRAZOLE SODIUM
     Indication: Product used for unknown indication
     Dosage: 20 MG PACKET, 20 MG BY PER G TUBE ROUTE 1 (ONE) TIME EACH DAY BEFORE BREAKFAST.
  26. FOLVITE [Concomitant]
     Active Substance: FOLIC ACID
     Indication: Product used for unknown indication
     Dosage: 1 MG TABLET, TOME UNA TABLETA VIA G-TUBE ONCE A DAY,
  27. ROBINUL [Concomitant]
     Active Substance: GLYCOPYRROLATE
     Indication: Product used for unknown indication
     Dosage: TAKE 1.5 TABLET (1.5 MG TOTAL) BY PER G TUBE ROUTE IN THE MORNING AND 1.5 TABLET (1.5 MG TOTAL) AT NOON AND 1.5 TABLET
  28. TYLENOL [Concomitant]
     Active Substance: ACETAMINOPHEN
     Indication: Product used for unknown indication
     Dosage: UNK, INSERT 0.5 SUPPOSITORY EVERY 4-6 HOURS AS NEEDED
  29. KLONOPIN [Concomitant]
     Active Substance: CLONAZEPAM
     Indication: Seizure
     Dosage: 1 MILLIGRAM
     Route: 061
  30. IBUPROFEN [Concomitant]
     Active Substance: IBUPROFEN
     Indication: Pain
     Dosage: 12.5 MILLILITER EVERY 6 HOURS
  31. IBUPROFEN [Concomitant]
     Active Substance: IBUPROFEN
     Indication: Pyrexia
  32. LUMINAL [PHENOBARBITAL] [Concomitant]
     Indication: Product used for unknown indication
     Dosage: 15 MILLIGRAM, 2X/DAY (BID)
     Route: 061
  33. LUMINAL [PHENOBARBITAL] [Concomitant]
     Dosage: 60 MILLIGRAM, 2X/DAY (BID)
     Route: 061

REACTIONS (21)
  - Hip arthroplasty [Recovered/Resolved]
  - Arthritis [Recovered/Resolved]
  - Knee operation [Recovered/Resolved]
  - Aortic valve incompetence [Not Recovered/Not Resolved]
  - Pulmonary arterial pressure increased [Not Recovered/Not Resolved]
  - Tricuspid valve incompetence [Not Recovered/Not Resolved]
  - Mitral valve incompetence [Unknown]
  - Aortic valve thickening [Unknown]
  - CSF test abnormal [Not Recovered/Not Resolved]
  - Ventricular hypertrophy [Not Recovered/Not Resolved]
  - Seizure [Unknown]
  - Viral infection [Unknown]
  - Urinary tract infection [Unknown]
  - Coronary sinus dilatation [Unknown]
  - Right ventricular dilatation [Unknown]
  - Left ventricular dysfunction [Unknown]
  - Wheelchair user [Unknown]
  - Feeding tube user [Unknown]
  - Tracheostomy [Unknown]
  - Nasopharyngitis [Unknown]
  - Right ventricular systolic pressure [Unknown]
